FAERS Safety Report 4569148-5 (Version None)
Quarter: 2005Q1

REPORT INFORMATION
  Report Type: 
  Country: None (occurrence: None)
  Receive Date: 20050203
  Receipt Date: 20050118
  Transmission Date: 20050727
  Serious: Yes (Death, Other)
  Sender: FDA-Public Use
  Company Number: ESWYE349118JAN05

PATIENT
  Sex: Female

DRUGS (11)
  1. ENBREL [Suspect]
     Indication: RHEUMATOID ARTHRITIS
     Route: 058
     Dates: start: 20040301
  2. INSULIN [Concomitant]
     Indication: DIABETES MELLITUS INSULIN-DEPENDENT
  3. GLIBENCLAMIDE [Concomitant]
  4. AZATHIOPRINE [Concomitant]
  5. AMITRIPTYLINE HYDROCHLORIDE [Concomitant]
  6. FENTANYL [Concomitant]
  7. FERROUS SULFATE TAB [Concomitant]
  8. FUROSEMIDE [Concomitant]
     Dates: start: 20031201
  9. HYDROCHLOROTHIAZIDE [Concomitant]
     Dates: start: 20031201
  10. PANTOPRAZOLE SODIUM [Concomitant]
  11. CARVEDILOL [Concomitant]
     Dates: start: 20031201

REACTIONS (4)
  - CARDIAC FAILURE [None]
  - CONDITION AGGRAVATED [None]
  - DEATH [None]
  - NASOPHARYNGITIS [None]
